FAERS Safety Report 25102660 (Version 1)
Quarter: 2025Q1

REPORT INFORMATION
  Report Type: Spontaneous
  Country: MY (occurrence: MY)
  Receive Date: 20250321
  Receipt Date: 20250321
  Transmission Date: 20250409
  Serious: Yes (Hospitalization, Other)
  Sender: RANBAXY
  Company Number: MY-SUN PHARMACEUTICAL INDUSTRIES LTD-2025R1-499460

PATIENT
  Age: 68 Year
  Sex: Male

DRUGS (2)
  1. NOREPINEPHRINE BITARTRATE [Suspect]
     Active Substance: NOREPINEPHRINE BITARTRATE
     Indication: Tachycardia
     Route: 042
  2. NOREPINEPHRINE BITARTRATE [Suspect]
     Active Substance: NOREPINEPHRINE BITARTRATE
     Indication: Hypotension

REACTIONS (1)
  - Haemothorax [Unknown]
